FAERS Safety Report 6999891-X (Version None)
Quarter: 2010Q3

REPORT INFORMATION
  Report Type: 
  Country: None (occurrence: None)
  Receive Date: 20100920
  Receipt Date: 20090721
  Transmission Date: 20110219
  Serious: Yes (Other)
  Sender: FDA-Public Use
  Company Number: US-ASTRAZENECA-2007UW05840

PATIENT
  Age: 12079 Day
  Sex: Female
  Weight: 83 kg

DRUGS (4)
  1. SEROQUEL [Suspect]
     Route: 048
     Dates: start: 20051117
  2. EFFEXOR XR [Concomitant]
     Dosage: 150 MG 2 CAPSULES DAILY WITH FOOD
     Dates: start: 20051117
  3. SPIRONOLACTONE [Concomitant]
     Dates: start: 20051117
  4. CALCIUM [Concomitant]
     Dates: start: 20051117

REACTIONS (3)
  - KETOACIDOSIS [None]
  - PANCREATITIS [None]
  - TYPE 2 DIABETES MELLITUS [None]
